FAERS Safety Report 16047959 (Version 1)
Quarter: 2019Q1

REPORT INFORMATION
  Report Type: Spontaneous
  Country: US (occurrence: US)
  Receive Date: 20190307
  Receipt Date: 20190307
  Transmission Date: 20190418
  Serious: No
  Sender: FDA-Public Use
  Company Number: US-JUBILANT CADISTA PHARMACEUTICALS-2019JUB00034

PATIENT
  Sex: Male

DRUGS (1)
  1. FELODIPINE. [Suspect]
     Active Substance: FELODIPINE
     Dosage: UNK
     Dates: start: 201901

REACTIONS (2)
  - Epistaxis [Unknown]
  - Product substitution issue [Unknown]

NARRATIVE: CASE EVENT DATE: 201901
